FAERS Safety Report 12320394 (Version 2)
Quarter: 2016Q2

REPORT INFORMATION
  Report Type: Spontaneous
  Country: None (occurrence: US)
  Receive Date: 20160429
  Receipt Date: 20160606
  Transmission Date: 20160815
  Serious: No
  Sender: FDA-Public Use
  Company Number: US-MATRIXX INITIATIVES, INC.-1051228

PATIENT
  Age: 76 Year
  Sex: Female
  Weight: 65.91 kg

DRUGS (6)
  1. XANAX [Concomitant]
     Active Substance: ALPRAZOLAM
  2. ZOCOR [Concomitant]
     Active Substance: SIMVASTATIN
  3. FARAME [Concomitant]
  4. ZICAM NOS [Suspect]
     Active Substance: ACETAMINOPHEN\CHLORPHENIRAMINE MALEATE\DEXTROMETHORPHAN HYDROBROMIDE\PHENYLEPHRINE HYDROCHLORIDE OR ACETAMINOPHEN\DEXTROMETHORPHAN HYDROBROMIDE\DOXYLAMINE SUCCINATE\PHENYLEPHRINE HYDROCHLORIDE
     Indication: NASOPHARYNGITIS
     Route: 048
  5. BENADRYL [Concomitant]
     Active Substance: DIPHENHYDRAMINE HYDROCHLORIDE
  6. UNSPECIFIED ANTI-DEPRESSANT [Concomitant]

REACTIONS (6)
  - Anosmia [Not Recovered/Not Resolved]
  - Dehydration [None]
  - Syncope [None]
  - Decreased appetite [None]
  - Depression [None]
  - Ageusia [Not Recovered/Not Resolved]
